FAERS Safety Report 8613533-9 (Version None)
Quarter: 2012Q3

REPORT INFORMATION
  Report Type: 
  Country: None (occurrence: None)
  Receive Date: 20120823
  Receipt Date: 20120808
  Transmission Date: 20120928
  Serious: Yes (Other)
  Sender: FDA-Public Use
  Company Number: JP-MERCK-1208JPN000618

PATIENT

DRUGS (4)
  1. ESTAZOLAM [Concomitant]
     Dosage: UNK
     Route: 048
     Dates: start: 20100303
  2. MIRTAZAPINE [Suspect]
     Indication: DEPRESSION
     Dosage: 15 MG, UNK
     Route: 048
     Dates: start: 20091118, end: 20120717
  3. CHLORPROMAZINE HCL [Concomitant]
     Dosage: UNK
     Route: 048
     Dates: start: 20110824
  4. FLUNITRAZEPAM [Concomitant]
     Dosage: UNK
     Route: 048
     Dates: start: 20091118

REACTIONS (1)
  - CONVULSION [None]
